FAERS Safety Report 4601242-2 (Version None)
Quarter: 2005Q1

REPORT INFORMATION
  Report Type: 
  Country: None (occurrence: None)
  Receive Date: 20050304
  Receipt Date: 20050225
  Transmission Date: 20050727
  Serious: Yes (Hospitalization)
  Sender: FDA-Public Use
  Company Number: KII-2005-0015350

PATIENT
  Age: 18 Month
  Sex: Female

DRUGS (2)
  1. OXYCODONE HCL [Suspect]
     Dosage: ORAL
     Route: 048
     Dates: start: 20050203
  2. BENZODIAZEPINE DERIVATIVES [Suspect]
     Dosage: ORAL
     Route: 048
     Dates: start: 20050203

REACTIONS (4)
  - ACCIDENTAL EXPOSURE [None]
  - CRYING [None]
  - MIOSIS [None]
  - SOMNOLENCE [None]
